FAERS Safety Report 17487387 (Version 1)
Quarter: 2020Q1

REPORT INFORMATION
  Report Type: Spontaneous
  Country: DE (occurrence: DE)
  Receive Date: 20200303
  Receipt Date: 20200303
  Transmission Date: 20200409
  Serious: Yes (Other)
  Sender: FDA-Public Use
  Company Number: DE-BAUSCH-BL-2020-005599

PATIENT
  Age: 60 Year
  Sex: Female

DRUGS (4)
  1. DUPIXENT [Suspect]
     Active Substance: DUPILUMAB
     Indication: NEURODERMATITIS
     Dosage: 2 DF, 1X
     Route: 065
     Dates: start: 2018, end: 2018
  2. DUPIXENT [Suspect]
     Active Substance: DUPILUMAB
     Indication: ASTHMA
     Dosage: 300 MG
     Route: 065
  3. PREDNISOLONE. [Suspect]
     Active Substance: PREDNISOLONE
     Dosage: 50 MG
     Route: 065
  4. PREDNISOLONE. [Suspect]
     Active Substance: PREDNISOLONE
     Indication: OPTIC NEURITIS
     Dosage: 5 MG
     Route: 065

REACTIONS (8)
  - Skin disorder [Unknown]
  - Condition aggravated [Not Recovered/Not Resolved]
  - Pruritus [Unknown]
  - Swelling of eyelid [Recovered/Resolved]
  - Scar [Unknown]
  - Optic neuritis [Not Recovered/Not Resolved]
  - Dry skin [Unknown]
  - Unevaluable event [Unknown]

NARRATIVE: CASE EVENT DATE: 202001
